FAERS Safety Report 19767121 (Version 1)
Quarter: 2021Q3

REPORT INFORMATION
  Report Type: Spontaneous
  Country: US (occurrence: US)
  Receive Date: 20210830
  Receipt Date: 20210830
  Transmission Date: 20211014
  Serious: Yes (Hospitalization)
  Sender: FDA-Public Use
  Company Number: None

PATIENT
  Age: 61 Year
  Sex: Female
  Weight: 60.75 kg

DRUGS (1)
  1. HALOBETASOL PROPIONATE CREAM 0.05% [Suspect]
     Active Substance: HALOBETASOL PROPIONATE

REACTIONS (1)
  - Drug hypersensitivity [None]
